FAERS Safety Report 25850031 (Version 1)
Quarter: 2025Q3

REPORT INFORMATION
  Report Type: Spontaneous
  Country: GB (occurrence: GB)
  Receive Date: 20250926
  Receipt Date: 20250926
  Transmission Date: 20251021
  Serious: Yes (Other)
  Sender: ADVANZ PHARMA
  Company Number: GB-MLMSERVICE-20250909-PI636827-00270-1

PATIENT

DRUGS (1)
  1. PREDNISOLONE [Suspect]
     Active Substance: PREDNISOLONE
     Indication: Conjunctival scar
     Route: 048

REACTIONS (3)
  - Steroid diabetes [Unknown]
  - Intraocular pressure increased [Unknown]
  - Hypertension [Unknown]
